FAERS Safety Report 6921688-7 (Version None)
Quarter: 2010Q3

REPORT INFORMATION
  Report Type: 
  Country: None (occurrence: None)
  Receive Date: 20100812
  Receipt Date: 20100803
  Transmission Date: 20110219
  Serious: Yes (Other)
  Sender: FDA-Public Use
  Company Number: IT-JNJFOC-20100802215

PATIENT
  Age: 28 Year
  Sex: Female

DRUGS (3)
  1. TRETINOIN [Suspect]
     Indication: ALOPECIA AREATA
     Dosage: 40 DAY COURSE
     Route: 061
  2. MINOXIDIL [Suspect]
     Indication: ALOPECIA AREATA
     Dosage: 40 DAY COURSE
     Route: 061
  3. BETAMETHASONE VALERATE [Suspect]
     Indication: ALOPECIA AREATA
     Dosage: 40 DAY COURSE

REACTIONS (2)
  - DRUG INEFFECTIVE FOR UNAPPROVED INDICATION [None]
  - KERION [None]
